FAERS Safety Report 15887855 (Version 1)
Quarter: 2019Q1

REPORT INFORMATION
  Report Type: Spontaneous
  Country: US (occurrence: US)
  Receive Date: 20190130
  Receipt Date: 20190130
  Transmission Date: 20190417
  Serious: No
  Sender: FDA-Public Use
  Company Number: US-009507513-1901USA007994

PATIENT
  Age: 66 Year
  Sex: Male

DRUGS (1)
  1. INTRON A [Suspect]
     Active Substance: INTERFERON ALFA-2B
     Dosage: UNK (STRENGTH:18MU)
     Dates: start: 20180601

REACTIONS (1)
  - Depression [Unknown]

NARRATIVE: CASE EVENT DATE: 20180601
